FAERS Safety Report 18162250 (Version 1)
Quarter: 2020Q3

REPORT INFORMATION
  Report Type: Spontaneous
  Country: US (occurrence: US)
  Receive Date: 20200818
  Receipt Date: 20200818
  Transmission Date: 20201103
  Serious: Yes (Hospitalization)
  Sender: FDA-Public Use
  Company Number: None

PATIENT
  Age: 74 Year
  Sex: Female
  Weight: 112.7 kg

DRUGS (2)
  1. PALBOCICLIB (PD? 0332991) [Suspect]
     Active Substance: PALBOCICLIB
     Dates: end: 20200714
  2. FEMARA [Suspect]
     Active Substance: LETROZOLE
     Dates: end: 20200728

REACTIONS (7)
  - Acute kidney injury [None]
  - Non-cardiac chest pain [None]
  - Dyspnoea [None]
  - Gastric antral vascular ectasia [None]
  - Dyspnoea exertional [None]
  - Gastrointestinal haemorrhage [None]
  - Anaemia [None]

NARRATIVE: CASE EVENT DATE: 20200729
